FAERS Safety Report 8478381-1 (Version None)
Quarter: 2012Q2

REPORT INFORMATION
  Report Type: 
  Country: None (occurrence: None)
  Receive Date: 20120629
  Receipt Date: 20120626
  Transmission Date: 20120825
  Serious: No
  Sender: FDA-Public Use
  Company Number: US-TEVA-345357USA

PATIENT
  Sex: Female

DRUGS (2)
  1. NUVIGIL [Suspect]
     Dosage: 300 MILLIGRAM;
     Route: 048
     Dates: start: 20120501
  2. NUVIGIL [Suspect]
     Dosage: 500 MILLIGRAM;
     Route: 048

REACTIONS (2)
  - DRUG PRESCRIBING ERROR [None]
  - LIVER FUNCTION TEST ABNORMAL [None]
